FAERS Safety Report 9156419 (Version 1)
Quarter: 2013Q1

REPORT INFORMATION
  Report Type: Spontaneous
  Country: US (occurrence: None)
  Receive Date: 20130307
  Receipt Date: 20130307
  Transmission Date: 20140127
  Serious: No
  Sender: FDA-Public Use
  Company Number: None

PATIENT
  Age: 41 Year
  Sex: Male
  Weight: 127.92 kg

DRUGS (1)
  1. PERCOCET 10MG/325MG [Suspect]
     Indication: PAIN
     Dosage: 1 PILL 4 TIMES A DAY, PO
     Route: 048
     Dates: start: 20101001, end: 20130305

REACTIONS (6)
  - Feeling abnormal [None]
  - Headache [None]
  - Dizziness [None]
  - Fear [None]
  - Product substitution issue [None]
  - Therapeutic response decreased [None]
